FAERS Safety Report 24385698 (Version 1)
Quarter: 2024Q4

REPORT INFORMATION
  Report Type: Spontaneous
  Country: CA (occurrence: CA)
  Receive Date: 20241001
  Receipt Date: 20241001
  Transmission Date: 20250115
  Serious: Yes (Other)
  Sender: PFIZER
  Company Number: CA-PFIZER INC-202400265761

PATIENT
  Age: 54 Year
  Sex: Female
  Weight: 74 kg

DRUGS (15)
  1. LEVOFLOXACIN [Suspect]
     Active Substance: LEVOFLOXACIN
     Indication: Pneumonia legionella
     Dosage: 750 MG, 1X/DAY
  2. LEVOFLOXACIN [Suspect]
     Active Substance: LEVOFLOXACIN
     Indication: Pneumonia legionella
     Dosage: 750 MG, 1X/DAY
     Route: 042
  3. ACETYLCYSTEINE [Concomitant]
     Active Substance: ACETYLCYSTEINE
     Dosage: UNK
  4. FENTANYL [Concomitant]
     Active Substance: FENTANYL
     Dosage: UNK
  5. FRAGMIN [Concomitant]
     Active Substance: DALTEPARIN SODIUM
     Dosage: UNK
  6. HYDROMORPHONE [Concomitant]
     Active Substance: HYDROMORPHONE
     Dosage: UNK
  7. LASIX [Concomitant]
     Active Substance: FUROSEMIDE
     Dosage: UNK
  8. LIPITOR [Concomitant]
     Active Substance: ATORVASTATIN CALCIUM
     Dosage: UNK
     Route: 065
  9. MEROPENEM [Concomitant]
     Active Substance: MEROPENEM
     Dosage: UNK
  10. NOREPINEPHRINE [Concomitant]
     Active Substance: NOREPINEPHRINE\NOREPINEPHRINE BITARTRATE
     Dosage: UNK
  11. PANTOPRAZOLE [Concomitant]
     Active Substance: PANTOPRAZOLE
     Dosage: UNK
  12. PROPOFOL [Concomitant]
     Active Substance: PROPOFOL
     Dosage: UNK
     Route: 065
  13. ROCURONIUM [Concomitant]
     Active Substance: ROCURONIUM BROMIDE
     Dosage: UNK
  14. SYNTHROID [Concomitant]
     Active Substance: LEVOTHYROXINE SODIUM
     Dosage: UNK
  15. INSULIN ASPART [Concomitant]
     Active Substance: INSULIN ASPART
     Dosage: UNK

REACTIONS (3)
  - Hepatitis toxic [Recovering/Resolving]
  - Hepatitis viral [Recovering/Resolving]
  - Rash morbilliform [Recovering/Resolving]
